FAERS Safety Report 6912453-5 (Version None)
Quarter: 2010Q3

REPORT INFORMATION
  Report Type: 
  Country: None (occurrence: None)
  Receive Date: 20100806
  Receipt Date: 20080515
  Transmission Date: 20110219
  Serious: No
  Sender: FDA-Public Use
  Company Number: US-PFIZER INC-2008031606

PATIENT
  Sex: Female
  Weight: 100 kg

DRUGS (9)
  1. DETROL LA [Suspect]
     Indication: POLLAKIURIA
  2. CELEBREX [Suspect]
     Indication: ARTHRITIS
     Dates: start: 20041208
  3. NEXIUM [Concomitant]
  4. GABAPENTIN [Concomitant]
  5. URSODIOL [Concomitant]
     Indication: BILIARY CIRRHOSIS
  6. METOPROLOL [Concomitant]
  7. VITAMIN TAB [Concomitant]
  8. GLUCOSAMINE [Concomitant]
  9. CALCIUM [Concomitant]

REACTIONS (2)
  - MUSCULOSKELETAL STIFFNESS [None]
  - POLLAKIURIA [None]
